FAERS Safety Report 18285678 (Version 2)
Quarter: 2020Q4

REPORT INFORMATION
  Report Type: Report from Study
  Country: CN (occurrence: CN)
  Receive Date: 20200918
  Receipt Date: 20201002
  Transmission Date: 20210113
  Serious: Yes (Hospitalization)
  Sender: FDA-Public Use
  Company Number: CN-ANIPHARMA-2020-CN-000262

PATIENT
  Age: 44 Year
  Sex: Female
  Weight: 65 kg

DRUGS (2)
  1. GRANULOCYTE COLONY STIMULATING FACTOR [Concomitant]
     Active Substance: GRANULOCYTE COLONY-STIMULATING FACTOR NOS
     Route: 065
  2. ANASTROZOLE. [Suspect]
     Active Substance: ANASTROZOLE
     Indication: INVASIVE PAPILLARY BREAST CARCINOMA
     Dosage: 1 MG DAILY
     Route: 048
     Dates: start: 20181115

REACTIONS (1)
  - Platelet count decreased [Not Recovered/Not Resolved]

NARRATIVE: CASE EVENT DATE: 20200807
